FAERS Safety Report 22391635 (Version 1)
Quarter: 2023Q2

REPORT INFORMATION
  Report Type: Spontaneous
  Country: PL (occurrence: PL)
  Receive Date: 20230601
  Receipt Date: 20230601
  Transmission Date: 20230722
  Serious: Yes (Other)
  Sender: FDA-Public Use
  Company Number: PL-EXELIXIS-CABO-23064267

PATIENT
  Age: 35 Year
  Sex: Male

DRUGS (3)
  1. CABOMETYX [Suspect]
     Active Substance: CABOZANTINIB S-MALATE
     Indication: Hepatocellular carcinoma
     Dosage: UNK
     Route: 065
  2. TECENTRIQ [Suspect]
     Active Substance: ATEZOLIZUMAB
     Indication: Hepatocellular carcinoma
     Dosage: 1200 MG, Q3WEEKS, NEXT DOSE ADMINISTERED ON 8/DEC/2022, 21/DEC/2022.
     Route: 042
     Dates: start: 20220721
  3. AVASTIN [Suspect]
     Active Substance: BEVACIZUMAB
     Indication: Hepatocellular carcinoma
     Dosage: 5 MG/KG, Q3WEEKS
     Route: 042
     Dates: start: 20220721

REACTIONS (3)
  - Myocardial ischaemia [Unknown]
  - Cardiogenic shock [Unknown]
  - Disease progression [Unknown]

NARRATIVE: CASE EVENT DATE: 20221125
